FAERS Safety Report 15456354 (Version 4)
Quarter: 2019Q1

REPORT INFORMATION
  Report Type: Spontaneous
  Country: FR (occurrence: FR)
  Receive Date: 20181002
  Receipt Date: 20190320
  Transmission Date: 20190417
  Serious: Yes (Life-Threatening, Hospitalization, Other)
  Sender: FDA-Public Use
  Company Number: PHHY2018FR112667

PATIENT
  Age: 39 Year
  Sex: Male
  Weight: 59 kg

DRUGS (1)
  1. GILENYA [Suspect]
     Active Substance: FINGOLIMOD HYDROCHLORIDE
     Indication: MULTIPLE SCLEROSIS
     Dosage: 0.5 MG, QD
     Route: 048
     Dates: start: 20160701, end: 20180702

REACTIONS (3)
  - Lymphatic duct injury [Unknown]
  - Testicular seminoma (pure) [Not Recovered/Not Resolved]
  - Testicular mass [Recovering/Resolving]

NARRATIVE: CASE EVENT DATE: 201802
